FAERS Safety Report 25379908 (Version 1)
Quarter: 2025Q2

REPORT INFORMATION
  Report Type: Report from Study
  Country: PH (occurrence: PH)
  Receive Date: 20250530
  Receipt Date: 20250530
  Transmission Date: 20250717
  Serious: Yes (Death)
  Sender: OTSUKA
  Company Number: PH-MMM-Otsuka-XKY5DJ6V

PATIENT
  Sex: Male

DRUGS (1)
  1. TOLVAPTAN [Suspect]
     Active Substance: TOLVAPTAN
     Indication: Diuretic therapy
     Dosage: 1 DF, TIW (15 MG 1 TABLET EVERY TUESDAY, THURSDAY AND SUNDAY)
     Route: 048
     Dates: start: 202407

REACTIONS (2)
  - Pneumonia [Fatal]
  - Infection [Fatal]
